FAERS Safety Report 24708814 (Version 1)
Quarter: 2024Q4

REPORT INFORMATION
  Report Type: Spontaneous
  Country: GB (occurrence: GB)
  Receive Date: 20241207
  Receipt Date: 20241207
  Transmission Date: 20250115
  Serious: Yes (Death)
  Sender: AMGEN
  Company Number: GB-AMGEN-GBRSP2024239546

PATIENT
  Age: 78 Year
  Sex: Female

DRUGS (1)
  1. LUMAKRAS [Suspect]
     Active Substance: SOTORASIB
     Indication: Non-small cell lung cancer
     Dosage: 960 MILLIGRAM, QD
     Route: 048
     Dates: end: 20241201

REACTIONS (1)
  - Death [Fatal]

NARRATIVE: CASE EVENT DATE: 20241201
